FAERS Safety Report 24121240 (Version 1)
Quarter: 2024Q3

REPORT INFORMATION
  Report Type: Spontaneous
  Country: US (occurrence: None)
  Receive Date: 20240718
  Receipt Date: 20240718
  Transmission Date: 20241016
  Serious: Yes (Other)
  Sender: Public
  Company Number: None

PATIENT
  Age: 50 Year
  Sex: Female
  Weight: 54.9 kg

DRUGS (6)
  1. DIETARY SUPPLEMENT [Suspect]
     Active Substance: DIETARY SUPPLEMENT
     Indication: Arthralgia
     Dosage: FREQUENCY : AT BEDTIME;?
     Route: 048
     Dates: start: 20240408, end: 20240710
  2. DIETARY SUPPLEMENT [Suspect]
     Active Substance: DIETARY SUPPLEMENT
     Indication: Neck pain
  3. DIETARY SUPPLEMENT [Suspect]
     Active Substance: DIETARY SUPPLEMENT
     Indication: Back pain
  4. DICLOFENAC [Suspect]
     Active Substance: DICLOFENAC
  5. OMEPRAZOLE [Suspect]
     Active Substance: OMEPRAZOLE
  6. Smarty pants prenatal vitamin [Concomitant]

REACTIONS (15)
  - Abdominal distension [None]
  - Abdominal pain upper [None]
  - Flatulence [None]
  - Therapy non-responder [None]
  - Back pain [None]
  - Hypotension [None]
  - Dyspnoea [None]
  - Rash [None]
  - Urticaria [None]
  - Back pain [None]
  - Dizziness [None]
  - Dizziness [None]
  - Fatigue [None]
  - Constipation [None]
  - Diarrhoea [None]

NARRATIVE: CASE EVENT DATE: 20240525
